FAERS Safety Report 23877116 (Version 1)
Quarter: 2024Q2

REPORT INFORMATION
  Report Type: Other
  Country: US (occurrence: None)
  Receive Date: 20240521
  Receipt Date: 20240521
  Transmission Date: 20240716
  Serious: Yes (Other)
  Sender: FDA-Public Use
  Company Number: US-ROCHE-3557271

PATIENT
  Age: 74 Year
  Sex: Female
  Weight: 59.928 kg

DRUGS (4)
  1. XOLAIR [Suspect]
     Active Substance: OMALIZUMAB
     Indication: Urticaria
     Route: 058
     Dates: start: 202003
  2. LEVOTHYROXINE [Concomitant]
     Active Substance: LEVOTHYROXINE\LEVOTHYROXINE SODIUM
     Route: 048
     Dates: start: 1991
  3. ALLEGRA [Concomitant]
     Active Substance: FEXOFENADINE HYDROCHLORIDE
     Indication: Hypersensitivity
     Route: 048
     Dates: start: 201906
  4. XYZAL [Concomitant]
     Active Substance: LEVOCETIRIZINE DIHYDROCHLORIDE
     Indication: Hypersensitivity
     Route: 048
     Dates: start: 201906

REACTIONS (11)
  - Angioedema [Recovering/Resolving]
  - Drug ineffective [Unknown]
  - Urticaria [Recovering/Resolving]
  - Cystocele [Recovered/Resolved]
  - Urinary incontinence [Not Recovered/Not Resolved]
  - Otitis media chronic [Unknown]
  - Tinnitus [Unknown]
  - Conjunctivitis allergic [Unknown]
  - Gastrooesophageal reflux disease [Unknown]
  - Rhinitis allergic [Recovering/Resolving]
  - Eczema [Recovering/Resolving]

NARRATIVE: CASE EVENT DATE: 20230101
